FAERS Safety Report 12942204 (Version 2)
Quarter: 2017Q1

REPORT INFORMATION
  Report Type: Spontaneous
  Country: DE (occurrence: DE)
  Receive Date: 20161115
  Receipt Date: 20170227
  Transmission Date: 20170428
  Serious: Yes (Death, Life-Threatening, Hospitalization, Other)
  Sender: FDA-Public Use
  Company Number: DE-BRISTOL-MYERS SQUIBB COMPANY-BMS-2016-094506

PATIENT
  Age: 68 Year
  Sex: Female

DRUGS (1)
  1. ELIQUIS [Suspect]
     Active Substance: APIXABAN
     Indication: PULMONARY EMBOLISM
     Dosage: 5 MG, BID
     Route: 048
     Dates: end: 20161020

REACTIONS (5)
  - Cerebral ventricular rupture [Fatal]
  - Ventricular drainage [Unknown]
  - Transfusion [Unknown]
  - Aneurysm ruptured [Fatal]
  - Subarachnoid haemorrhage [Fatal]

NARRATIVE: CASE EVENT DATE: 20161020
